FAERS Safety Report 7972902-0 (Version None)
Quarter: 2011Q4

REPORT INFORMATION
  Report Type: 
  Country: None (occurrence: None)
  Receive Date: 20111209
  Receipt Date: 20111125
  Transmission Date: 20120403
  Serious: Yes (Hospitalization, Other)
  Sender: FDA-Public Use
  Company Number: 2011AP002852

PATIENT
  Age: 37 Year
  Sex: Female

DRUGS (7)
  1. AMLODIPINE BESYLATE [Suspect]
     Indication: PRODUCT USED FOR UNKNOWN INDICATION
  2. CARBAMAZEPINE [Suspect]
     Indication: PRODUCT USED FOR UNKNOWN INDICATION
  3. WARFARIN SODIUM [Suspect]
     Indication: PRODUCT USED FOR UNKNOWN INDICATION
  4. INSULIN [Suspect]
     Indication: CARDIOGENIC SHOCK
     Dosage: 30 IU; IVBOL, IVDRP
     Route: 040
  5. TRAMADOL HYDROCHLORIDE [Suspect]
     Indication: PRODUCT USED FOR UNKNOWN INDICATION
  6. LOXAPINE [Suspect]
     Indication: PRODUCT USED FOR UNKNOWN INDICATION
  7. NOREPINEPHRINE BITARTRATE [Suspect]
     Indication: CARDIOGENIC SHOCK

REACTIONS (5)
  - EXTREMITY NECROSIS [None]
  - DISSEMINATED INTRAVASCULAR COAGULATION [None]
  - CARDIOGENIC SHOCK [None]
  - MULTIPLE DRUG OVERDOSE [None]
  - HYPOGLYCAEMIA [None]
